FAERS Safety Report 5989543-7 (Version None)
Quarter: 2008Q4

REPORT INFORMATION
  Report Type: 
  Country: None (occurrence: None)
  Receive Date: 20081210
  Receipt Date: 20081121
  Transmission Date: 20090506
  Serious: Yes (Hospitalization)
  Sender: FDA-Public Use
  Company Number: GB-JNJCH-2008051573

PATIENT
  Sex: Female
  Weight: 15.4 kg

DRUGS (1)
  1. ACETAMINOPHEN [Suspect]
     Indication: ACCIDENTAL EXPOSURE
     Dosage: TEXT:6 SACHETS
     Route: 048
     Dates: start: 20080930, end: 20081006

REACTIONS (1)
  - ACCIDENTAL OVERDOSE [None]
